FAERS Safety Report 9526244 (Version 1)
Quarter: 2013Q3

REPORT INFORMATION
  Report Type: Spontaneous
  Country: GB (occurrence: GB)
  Receive Date: 20130916
  Receipt Date: 20130916
  Transmission Date: 20140515
  Serious: Yes (Other)
  Sender: FDA-Public Use
  Company Number: GB-PFIZER INC-2013257982

PATIENT
  Age: 44 Year
  Sex: Male
  Weight: 67 kg

DRUGS (2)
  1. INLYTA [Suspect]
     Indication: METASTATIC RENAL CELL CARCINOMA
     Dosage: 3 MG, 2X/DAY
     Dates: start: 201208
  2. INLYTA [Suspect]
     Dosage: 5 MG, 1X/DAY
     Dates: end: 201303

REACTIONS (3)
  - Pneumonitis [Unknown]
  - Disease progression [Unknown]
  - Metastatic renal cell carcinoma [Unknown]
